FAERS Safety Report 10755971 (Version 2)
Quarter: 2015Q1

REPORT INFORMATION
  Report Type: Spontaneous
  Country: US (occurrence: US)
  Receive Date: 20150202
  Receipt Date: 20150326
  Transmission Date: 20150721
  Serious: Yes (Death, Hospitalization, Other)
  Sender: FDA-Public Use
  Company Number: US-BAYER-2015-012345

PATIENT
  Age: 59 Year
  Sex: Female
  Weight: 76.19 kg

DRUGS (26)
  1. ROFECOXIB [Suspect]
     Active Substance: ROFECOXIB
     Indication: ARTHRITIS
     Dosage: 25 MG, QD
     Dates: start: 200006, end: 200410
  2. XENICAL [Suspect]
     Active Substance: ORLISTAT
  3. MAVIK [Suspect]
     Active Substance: TRANDOLAPRIL
  4. POTASSIUM [Concomitant]
     Active Substance: POTASSIUM
     Dosage: 10 MEQ, QD
  5. PLAVIX [Concomitant]
     Active Substance: CLOPIDOGREL BISULFATE
     Dosage: 75 MG, QD
  6. AUGMENTIN [Suspect]
     Active Substance: AMOXICILLIN\CLAVULANATE POTASSIUM
  7. ASPIRIN. [Suspect]
     Active Substance: ASPIRIN
  8. CYANOCOBALAMIN. [Concomitant]
     Active Substance: CYANOCOBALAMIN
  9. PRAVACHOL [Suspect]
     Active Substance: PRAVASTATIN SODIUM
  10. NORVASC [Concomitant]
     Active Substance: AMLODIPINE BESYLATE
     Dosage: 5 MG, QD
  11. TOPROL XL [Concomitant]
     Active Substance: METOPROLOL SUCCINATE
     Dosage: 50 MG, QD
  12. PREMARIN [Concomitant]
     Active Substance: ESTROGENS, CONJUGATED
     Dosage: 0.625 MG, QD
  13. ZANTAC [Concomitant]
     Active Substance: RANITIDINE HYDROCHLORIDE
     Dosage: 300 MG, QD
  14. RANITIDINE [Concomitant]
     Active Substance: RANITIDINE\RANITIDINE HYDROCHLORIDE
  15. ALEVE [Suspect]
     Active Substance: NAPROXEN SODIUM
  16. IMODIUM [Suspect]
     Active Substance: LOPERAMIDE HYDROCHLORIDE
  17. NORVASC [Concomitant]
     Active Substance: AMLODIPINE BESYLATE
     Dosage: 25 MG, QD
  18. POTASSIUM [Concomitant]
     Active Substance: POTASSIUM
     Dosage: 10 MEQ, QD
  19. MORPHINE [Concomitant]
     Active Substance: MORPHINE
  20. TOPROL XL [Concomitant]
     Active Substance: METOPROLOL SUCCINATE
     Dosage: 50 MG, QD
  21. DILTIAZEM [Suspect]
     Active Substance: DILTIAZEM
  22. FLONASE [Concomitant]
     Active Substance: FLUTICASONE PROPIONATE
  23. VITAMIN B12 [Concomitant]
     Active Substance: CYANOCOBALAMIN
     Dosage: UNK UNK, Q1MON
  24. DOXYCYCLINE. [Concomitant]
     Active Substance: DOXYCYCLINE
  25. IBUPROFEN. [Suspect]
     Active Substance: IBUPROFEN
  26. VITAMIN B12 [Concomitant]
     Active Substance: CYANOCOBALAMIN
     Dosage: UNK, OW

REACTIONS (65)
  - Dyslipidaemia [Unknown]
  - Pernicious anaemia [Unknown]
  - Appendicectomy [Unknown]
  - Musculoskeletal pain [Unknown]
  - Gastrointestinal disorder [Unknown]
  - Angina pectoris [Recovering/Resolving]
  - Anxiety [Unknown]
  - Nausea [Unknown]
  - Gastrooesophageal reflux disease [Unknown]
  - Deafness unilateral [Unknown]
  - Bundle branch block left [Unknown]
  - Myocardial infarction [Unknown]
  - Limb discomfort [Unknown]
  - Angina pectoris [Unknown]
  - Coronary artery disease [Unknown]
  - Coronary artery disease [Unknown]
  - Anaemia [Unknown]
  - Ventricular tachycardia [Unknown]
  - Abdominal pain [Unknown]
  - Vitamin B12 deficiency [Unknown]
  - Conduction disorder [Unknown]
  - Supraventricular tachycardia [Unknown]
  - Vomiting [Unknown]
  - Gastrointestinal pain [Unknown]
  - Cholecystectomy [Unknown]
  - Diarrhoea [Unknown]
  - Sudden cardiac death [Fatal]
  - Chest pain [Unknown]
  - Chest pain [Unknown]
  - Sinus bradycardia [Unknown]
  - Ventricular tachycardia [Unknown]
  - Ventricular tachycardia [Unknown]
  - Hypertensive heart disease [Unknown]
  - Myocardial infarction [Unknown]
  - Musculoskeletal pain [Unknown]
  - Hyperlipidaemia [Unknown]
  - Coronary artery restenosis [Unknown]
  - Abdominal discomfort [Unknown]
  - Syncope [Unknown]
  - Hypertension [Unknown]
  - Musculoskeletal discomfort [Unknown]
  - Arteriosclerosis [Recovering/Resolving]
  - Pain in extremity [Recovering/Resolving]
  - Back pain [Recovering/Resolving]
  - Device malfunction [Recovered/Resolved]
  - Fatigue [Unknown]
  - Chest pain [Unknown]
  - Diverticulum [Unknown]
  - Drug intolerance [Unknown]
  - Ventricular arrhythmia [Unknown]
  - Angina pectoris [Unknown]
  - Chronic sinusitis [Unknown]
  - Ischaemic cardiomyopathy [Unknown]
  - Syncope [Unknown]
  - Pulmonary granuloma [Unknown]
  - Drug intolerance [Unknown]
  - Peripheral swelling [Recovering/Resolving]
  - Peptic ulcer [Unknown]
  - Oedema peripheral [Unknown]
  - Left ventricular dysfunction [Unknown]
  - Myocardial infarction [Unknown]
  - Headache [Unknown]
  - Nephrolithiasis [Unknown]
  - Pericardial effusion [Unknown]
  - Labelled drug-drug interaction medication error [None]

NARRATIVE: CASE EVENT DATE: 200012
